APPROVED DRUG PRODUCT: ADDYI
Active Ingredient: FLIBANSERIN
Strength: 100MG
Dosage Form/Route: TABLET;ORAL
Application: N022526 | Product #001
Applicant: SPROUT PHARMACEUTICALS INC
Approved: Aug 18, 2015 | RLD: Yes | RS: Yes | Type: RX

PATENTS:
Patent 7151103 | Expires: May 9, 2028